FAERS Safety Report 20511535 (Version 1)
Quarter: 2022Q1

REPORT INFORMATION
  Report Type: Spontaneous
  Country: GB (occurrence: GB)
  Receive Date: 20220224
  Receipt Date: 20220224
  Transmission Date: 20220423
  Serious: Yes (Death, Life-Threatening, Other)
  Sender: FDA-Public Use
  Company Number: GB-AMGEN-GBRSP2022028837

PATIENT

DRUGS (7)
  1. FILGRASTIM [Suspect]
     Active Substance: FILGRASTIM
     Indication: Prophylaxis
     Dosage: UNK
     Route: 065
  2. FLUDARABINE [Suspect]
     Active Substance: FLUDARABINE PHOSPHATE
     Indication: Prophylaxis
     Dosage: 30 MG/M2 FOR 5 DAYS
     Route: 042
  3. PONATINIB [Suspect]
     Active Substance: PONATINIB
     Indication: Prophylaxis
     Dosage: 15 MILLIGRAM, ALTEMATE DAYS
     Route: 048
  4. PONATINIB [Suspect]
     Active Substance: PONATINIB
     Dosage: 45 MILLIGRAM, QD
     Route: 048
  5. PONATINIB [Suspect]
     Active Substance: PONATINIB
     Dosage: 30 MILLIGRAM, QD
     Route: 048
  6. CYTARABINE [Suspect]
     Active Substance: CYTARABINE
     Indication: Prophylaxis
     Dosage: 2 G/M2 FOR 5 DAYS
     Route: 065
  7. IDARUBICIN [Suspect]
     Active Substance: IDARUBICIN
     Indication: Prophylaxis
     Dosage: 8 MG/M2 FOR 3 DAYS
     Route: 065

REACTIONS (73)
  - Death [Fatal]
  - Cardiomyopathy [Fatal]
  - Bone marrow failure [Fatal]
  - Pulmonary haemorrhage [Fatal]
  - Cardiac disorder [Fatal]
  - Transplantation complication [Fatal]
  - Chronic myeloid leukaemia recurrent [Fatal]
  - Alanine aminotransferase increased [Unknown]
  - Neutropenia [Unknown]
  - White blood cell count decreased [Unknown]
  - Lymphocyte count decreased [Unknown]
  - Pneumonia [Unknown]
  - Lymphatic disorder [Unknown]
  - Blood disorder [Unknown]
  - Febrile neutropenia [Unknown]
  - Acute kidney injury [Unknown]
  - Ejection fraction decreased [Unknown]
  - Hypophosphataemia [Unknown]
  - Blood bilirubin increased [Unknown]
  - Neutrophil count decreased [Unknown]
  - Hypocalcaemia [Unknown]
  - Pulmonary oedema [Unknown]
  - Pyrexia [Unknown]
  - Dyspnoea [Unknown]
  - Leukocytosis [Unknown]
  - Anaemia [Unknown]
  - Thrombocytopenia [Unknown]
  - Platelet count decreased [Unknown]
  - Cerebral venous sinus thrombosis [Unknown]
  - Amylase increased [Unknown]
  - Infection [Unknown]
  - Infestation [Unknown]
  - Pericardial effusion [Unknown]
  - Angiopathy [Unknown]
  - Cytomegalovirus infection reactivation [Unknown]
  - Non-cardiac chest pain [Unknown]
  - Hypokalaemia [Unknown]
  - Confusional state [Unknown]
  - Dental caries [Unknown]
  - Hyperkalaemia [Unknown]
  - Multiple organ dysfunction syndrome [Unknown]
  - Appendicitis [Unknown]
  - Skin disorder [Unknown]
  - Gastrointestinal disorder [Unknown]
  - Investigation abnormal [Unknown]
  - Hypoxia [Unknown]
  - Gamma-glutamyltransferase increased [Unknown]
  - Graft versus host disease [Unknown]
  - Urticaria [Unknown]
  - Sepsis [Unknown]
  - Epistaxis [Unknown]
  - Rash maculo-papular [Unknown]
  - Headache [Unknown]
  - Therapy non-responder [Unknown]
  - Therapy partial responder [Unknown]
  - Hepatic function abnormal [Unknown]
  - Abdominal pain [Unknown]
  - Hypomagnesaemia [Unknown]
  - Lethargy [Unknown]
  - Eye disorder [Unknown]
  - Malnutrition [Unknown]
  - Metabolic disorder [Unknown]
  - Respiratory disorder [Unknown]
  - Ill-defined disorder [Unknown]
  - Mediastinal disorder [Unknown]
  - Musculoskeletal disorder [Unknown]
  - Connective tissue disorder [Unknown]
  - Hypoalbuminaemia [Unknown]
  - Constipation [Unknown]
  - Diarrhoea [Unknown]
  - Nausea [Unknown]
  - Vomiting [Unknown]
  - Back pain [Unknown]
